FAERS Safety Report 17988152 (Version 1)
Quarter: 2020Q3

REPORT INFORMATION
  Report Type: Spontaneous
  Country: ES (occurrence: ES)
  Receive Date: 20200707
  Receipt Date: 20200707
  Transmission Date: 20201103
  Serious: Yes (Other)
  Sender: FDA-Public Use
  Company Number: ES-BIOVITRUM-2020ES3536

PATIENT
  Age: 63 Year
  Sex: Male

DRUGS (3)
  1. ANAKINRA [Suspect]
     Active Substance: ANAKINRA
     Indication: RHEUMATOID ARTHRITIS
  2. PREDNISONE. [Suspect]
     Active Substance: PREDNISONE
  3. ANAKINRA [Suspect]
     Active Substance: ANAKINRA
     Indication: COVID-19

REACTIONS (2)
  - Death [Fatal]
  - Off label use [Unknown]
